FAERS Safety Report 21768205 (Version 2)
Quarter: 2023Q1

REPORT INFORMATION
  Report Type: Spontaneous
  Country: US (occurrence: US)
  Receive Date: 20221222
  Receipt Date: 20230105
  Transmission Date: 20230417
  Serious: Yes (Other)
  Sender: FDA-Public Use
  Company Number: US-TEVA-2022-US-2837377

PATIENT
  Age: 25 Year
  Sex: Male

DRUGS (2)
  1. PREDNISONE [Suspect]
     Active Substance: PREDNISONE
     Indication: Chronic lymphocytic inflammation with pontine perivascular enhancement responsive to steroids
     Dosage: 80 MILLIGRAM DAILY;
     Route: 065
  2. PREDNISONE [Suspect]
     Active Substance: PREDNISONE
     Dosage: 30 MILLIGRAM DAILY;
     Route: 065

REACTIONS (7)
  - Diplopia [Recovered/Resolved]
  - Weight increased [Recovering/Resolving]
  - Glucose tolerance impaired [Not Recovered/Not Resolved]
  - Bone density decreased [Unknown]
  - Tremor [Unknown]
  - Anxiety [Unknown]
  - Rebound effect [Unknown]
